FAERS Safety Report 19454485 (Version 2)
Quarter: 2021Q2

REPORT INFORMATION
  Report Type: Spontaneous
  Country: BR (occurrence: BR)
  Receive Date: 20210623
  Receipt Date: 20210629
  Transmission Date: 20210717
  Serious: Yes (Other)
  Sender: FDA-Public Use
  Company Number: BR-B.I. PHARMACEUTICALS,INC./RIDGEFIELD-2021-BI-109913

PATIENT
  Age: 83 Year
  Sex: Male

DRUGS (1)
  1. PRADAXA [Suspect]
     Active Substance: DABIGATRAN ETEXILATE MESYLATE
     Indication: PRODUCT USED FOR UNKNOWN INDICATION
     Dosage: TWICE A DAY OF PRADAXA 110 MG

REACTIONS (5)
  - Cardiac failure [Unknown]
  - Bladder cancer [Unknown]
  - Ejection fraction decreased [Unknown]
  - Urinary bladder haemorrhage [Unknown]
  - Atrial fibrillation [Unknown]
